FAERS Safety Report 13295687 (Version 4)
Quarter: 2017Q2

REPORT INFORMATION
  Report Type: Spontaneous
  Country: US (occurrence: US)
  Receive Date: 20170303
  Receipt Date: 20170530
  Transmission Date: 20170830
  Serious: Yes (Other)
  Sender: FDA-Public Use
  Company Number: US-B.I. PHARMACEUTICALS,INC./RIDGEFIELD-2017-BI-010494

PATIENT
  Age: 75 Year
  Sex: Male

DRUGS (11)
  1. POTASSIUM CHLORIDE. [Concomitant]
     Active Substance: POTASSIUM CHLORIDE
     Indication: PRODUCT USED FOR UNKNOWN INDICATION
     Route: 065
  2. NPLATE [Concomitant]
     Active Substance: ROMIPLOSTIM
     Route: 065
     Dates: start: 20160524
  3. FINASTERIDE. [Concomitant]
     Active Substance: FINASTERIDE
     Indication: PRODUCT USED FOR UNKNOWN INDICATION
     Route: 065
  4. NPLATE [Concomitant]
     Active Substance: ROMIPLOSTIM
     Route: 065
  5. NPLATE [Concomitant]
     Active Substance: ROMIPLOSTIM
     Route: 065
     Dates: start: 201604
  6. FLOMAX [Suspect]
     Active Substance: TAMSULOSIN HYDROCHLORIDE
     Indication: PRODUCT USED FOR UNKNOWN INDICATION
     Route: 065
  7. NPLATE [Concomitant]
     Active Substance: ROMIPLOSTIM
     Route: 065
     Dates: start: 20160510
  8. NPLATE [Concomitant]
     Active Substance: ROMIPLOSTIM
     Indication: IMMUNE THROMBOCYTOPENIC PURPURA
     Route: 065
     Dates: start: 20160405
  9. NPLATE [Concomitant]
     Active Substance: ROMIPLOSTIM
     Route: 065
  10. NPLATE [Concomitant]
     Active Substance: ROMIPLOSTIM
     Route: 065
     Dates: start: 20160726
  11. NPLATE [Concomitant]
     Active Substance: ROMIPLOSTIM
     Route: 065
     Dates: start: 20160607

REACTIONS (3)
  - Somnolence [Unknown]
  - Dizziness [Unknown]
  - Thrombosis [Unknown]

NARRATIVE: CASE EVENT DATE: 201604
